FAERS Safety Report 19000399 (Version 1)
Quarter: 2021Q1

REPORT INFORMATION
  Report Type: Spontaneous
  Country: US (occurrence: US)
  Receive Date: 20210312
  Receipt Date: 20210312
  Transmission Date: 20210420
  Serious: Yes (Other)
  Sender: FDA-Public Use
  Company Number: US-SUN PHARMACEUTICAL INDUSTRIES LTD-2021R1-284596

PATIENT
  Age: 16 Year
  Sex: Male

DRUGS (5)
  1. CLONAZEPAM. [Suspect]
     Active Substance: CLONAZEPAM
     Indication: EPILEPSY
  2. ETHOSUXIMIDE. [Suspect]
     Active Substance: ETHOSUXIMIDE
     Indication: EPILEPSY
     Route: 065
  3. VALPROATE [Suspect]
     Active Substance: VALPROIC ACID
     Indication: EPILEPSY
     Route: 065
  4. LEVETIRACETAM. [Suspect]
     Active Substance: LEVETIRACETAM
     Indication: EPILEPSY
     Route: 065
  5. CANNABINOID OIL [Suspect]
     Active Substance: CANNABIDIOL
     Indication: EPILEPSY
     Route: 065

REACTIONS (1)
  - Treatment failure [Unknown]
